FAERS Safety Report 7284463-2 (Version None)
Quarter: 2011Q1

REPORT INFORMATION
  Report Type: 
  Country: None (occurrence: None)
  Receive Date: 20110209
  Receipt Date: 20110202
  Transmission Date: 20110831
  Serious: Yes (Other)
  Sender: FDA-Public Use
  Company Number: BR-PFIZER INC-2011024687

PATIENT
  Age: 28 Year
  Sex: Female
  Weight: 56 kg

DRUGS (3)
  1. XALATAN [Suspect]
     Indication: OCULAR HYPERTENSION
     Dosage: 3 UG (ONE DROP IN EACH EYE), 1X/DAY
     Route: 050
     Dates: start: 20010101, end: 20101001
  2. HEPARIN [Suspect]
     Indication: COAGULOPATHY
     Dosage: 5000 IU, 1X/DAY
     Route: 050
     Dates: start: 20100501, end: 20110101
  3. ACETYLSALICYLIC ACID [Concomitant]
     Indication: COAGULOPATHY
     Dosage: 1 TABLET TWICE WEEKLY
     Route: 050
     Dates: start: 20100501, end: 20110101

REACTIONS (5)
  - ABORTION [None]
  - HAEMORRHAGE [None]
  - COAGULOPATHY [None]
  - INTRA-UTERINE DEATH [None]
  - THROMBOSIS [None]
